FAERS Safety Report 12227482 (Version 1)
Quarter: 2016Q1

REPORT INFORMATION
  Report Type: Report from Study
  Country: US (occurrence: US)
  Receive Date: 20160331
  Receipt Date: 20160331
  Transmission Date: 20160526
  Serious: Yes (Hospitalization)
  Sender: FDA-Public Use
  Company Number: US-BIOGEN-2016BI00210564

PATIENT
  Sex: Female

DRUGS (2)
  1. TYSABRI [Suspect]
     Active Substance: NATALIZUMAB
     Indication: MULTIPLE SCLEROSIS
     Route: 065
     Dates: start: 20071108, end: 20100113
  2. TYSABRI [Suspect]
     Active Substance: NATALIZUMAB
     Route: 065
     Dates: start: 201007, end: 201101

REACTIONS (4)
  - Post procedural complication [Not Recovered/Not Resolved]
  - Paraplegia [Not Recovered/Not Resolved]
  - General symptom [Not Recovered/Not Resolved]
  - Surgery [Recovered/Resolved]
